FAERS Safety Report 21936347 (Version 1)
Quarter: 2023Q1

REPORT INFORMATION
  Report Type: Report from Study
  Country: US (occurrence: US)
  Receive Date: 20230201
  Receipt Date: 20230201
  Transmission Date: 20230417
  Serious: Yes (Hospitalization)
  Sender: FDA-Public Use
  Company Number: US-BAYER-2022P026115

PATIENT
  Age: 61 Year
  Sex: Female

DRUGS (3)
  1. ADEMPAS [Suspect]
     Active Substance: RIOCIGUAT
     Indication: Pulmonary arterial hypertension
     Dosage: UNK
  2. ADEMPAS [Suspect]
     Active Substance: RIOCIGUAT
     Indication: Pulmonary arterial hypertension
     Dosage: 1MG
     Route: 048
     Dates: start: 20221201
  3. OPSUMIT [Suspect]
     Active Substance: MACITENTAN
     Indication: Pulmonary arterial hypertension
     Dosage: 10 MG, QD
     Route: 048
     Dates: start: 20221207

REACTIONS (6)
  - Dehydration [None]
  - Hypotension [None]
  - Diarrhoea [None]
  - Vomiting [Recovering/Resolving]
  - Nausea [None]
  - Dizziness [None]

NARRATIVE: CASE EVENT DATE: 20221201
